FAERS Safety Report 18360367 (Version 1)
Quarter: 2020Q4

REPORT INFORMATION
  Report Type: Spontaneous
  Country: US (occurrence: US)
  Receive Date: 20201007
  Receipt Date: 20201007
  Transmission Date: 20210114
  Serious: Yes (Hospitalization)
  Sender: FDA-Public Use
  Company Number: None

PATIENT
  Age: 59 Year
  Sex: Female

DRUGS (7)
  1. POT CL MICRO 20 MEQ [Concomitant]
     Active Substance: POTASSIUM CHLORIDE
  2. ALLOPURINOL. [Suspect]
     Active Substance: ALLOPURINOL
  3. ASPIRIN. [Suspect]
     Active Substance: ASPIRIN
  4. BENAZEPRIL [Suspect]
     Active Substance: BENAZEPRIL HYDROCHLORIDE
  5. REBIF [Suspect]
     Active Substance: INTERFERON BETA-1A
     Indication: MULTIPLE SCLEROSIS
     Route: 058
     Dates: start: 20130606
  6. HYDROCHLOROT [Suspect]
     Active Substance: HYDROCHLOROTHIAZIDE
  7. SIMVASTATIN. [Suspect]
     Active Substance: SIMVASTATIN

REACTIONS (3)
  - Therapy interrupted [None]
  - Pain in extremity [None]
  - Cerebrovascular accident [None]

NARRATIVE: CASE EVENT DATE: 20200101
